FAERS Safety Report 15293582 (Version 1)
Quarter: 2018Q3

REPORT INFORMATION
  Report Type: Spontaneous
  Country: US (occurrence: US)
  Receive Date: 20180820
  Receipt Date: 20180820
  Transmission Date: 20181010
  Serious: No
  Sender: FDA-Public Use
  Company Number: US-TEVA-821863USA

PATIENT
  Sex: Female

DRUGS (1)
  1. VENLAFAXINE [Suspect]
     Active Substance: VENLAFAXINE HYDROCHLORIDE
     Route: 065

REACTIONS (6)
  - Drug effect decreased [Unknown]
  - Abnormal dreams [Unknown]
  - Depressed mood [Unknown]
  - Feeling abnormal [Unknown]
  - Poor quality sleep [Unknown]
  - Product substitution issue [Unknown]
